FAERS Safety Report 4531988-6 (Version None)
Quarter: 2004Q4

REPORT INFORMATION
  Report Type: 
  Country: None (occurrence: None)
  Receive Date: 20041217
  Receipt Date: 20041214
  Transmission Date: 20050328
  Serious: Yes (Life-Threatening)
  Sender: FDA-Public Use
  Company Number: ITWYE282814DEC04

PATIENT
  Age: 72 Year
  Sex: Female

DRUGS (10)
  1. TAZOCIN (PIPERACILLIN/TAZOBACTAM, INJECTION) [Suspect]
     Indication: PNEUMONIA KLEBSIELLA
     Dosage: 1 G 1X PER 1 DAY; INTRAVENOUS
     Route: 042
     Dates: start: 20041123, end: 20041128
  2. CIPROXIN (CIPROFLOXACIN, , 0) [Suspect]
     Indication: PNEUMONIA KLEBSIELLA
     Dosage: 500 MG 2X PER 1 DAY; ORAL
     Route: 048
     Dates: start: 20041125, end: 20041128
  3. SURFACTAL (AMBROXOL HYDROCHLORIDE, , 0) [Suspect]
     Indication: PNEUMONIA KLEBSIELLA
     Dosage: 1 G 1X PER 1 DAY; INTRAVENOUS
     Route: 042
     Dates: start: 20041128, end: 20041128
  4. ROCALTROL [Concomitant]
  5. CACIT (CALCIUM CARBONATE/CITRIC ACID) [Concomitant]
  6. ADESIPRESS TTS (CLONIDINE) [Concomitant]
  7. SOTALOL HCL [Concomitant]
  8. QUARK [Concomitant]
  9. LASIX [Concomitant]
  10. EUTIROX [Concomitant]

REACTIONS (2)
  - DERMATITIS EXFOLIATIVE [None]
  - PLASMAPHERESIS [None]
